FAERS Safety Report 7121728-9 (Version None)
Quarter: 2010Q4

REPORT INFORMATION
  Report Type: 
  Country: None (occurrence: None)
  Receive Date: 20101122
  Receipt Date: 20101122
  Transmission Date: 20110411
  Serious: No
  Sender: FDA-Public Use
  Company Number: None

PATIENT
  Age: 30 Year
  Sex: Female
  Weight: 49.8957 kg

DRUGS (1)
  1. SUMATRIPTAN 100MG COBALT LABORATORIES [Suspect]
     Indication: MIGRAINE
     Dosage: 1 TABLETS, MAX 2 PER 24HRS AS NEEDED PO
     Route: 048
     Dates: start: 20091104, end: 20091104

REACTIONS (3)
  - DRUG INEFFECTIVE [None]
  - PAIN [None]
  - PRODUCT SUBSTITUTION ISSUE [None]
